FAERS Safety Report 10409608 (Version 1)
Quarter: 2014Q3

REPORT INFORMATION
  Report Type: Spontaneous
  Country: GB (occurrence: GB)
  Receive Date: 20140826
  Receipt Date: 20140826
  Transmission Date: 20150326
  Serious: Yes (Other)
  Sender: FDA-Public Use
  Company Number: GB-BAYER-2014-123430

PATIENT
  Sex: Female

DRUGS (1)
  1. BETAFERON [Suspect]
     Active Substance: INTERFERON BETA-1B
     Dosage: UNK, UNK
     Dates: start: 1998

REACTIONS (3)
  - Injection site atrophy [Not Recovered/Not Resolved]
  - Injection site pain [None]
  - Multiple sclerosis relapse [None]
